FAERS Safety Report 21266264 (Version 5)
Quarter: 2023Q1

REPORT INFORMATION
  Report Type: Spontaneous
  Country: IE (occurrence: IE)
  Receive Date: 20220829
  Receipt Date: 20230110
  Transmission Date: 20230418
  Serious: Yes (Hospitalization, Other)
  Sender: FDA-Public Use
  Company Number: None

PATIENT
  Age: 75 Year
  Sex: Male

DRUGS (7)
  1. NEURONTIN [Suspect]
     Active Substance: GABAPENTIN
     Indication: Neuropathy peripheral
     Dosage: HE WAS ON VERY HIGH DOSE FOR 12 MONTHS APPROX
     Route: 065
     Dates: start: 2021
  2. NEURONTIN [Suspect]
     Active Substance: GABAPENTIN
     Dosage: PRESSURE ON GP TO INCREASE THE NEURONTIN DOSE
     Route: 065
     Dates: end: 2021
  3. URISPAS [Concomitant]
     Active Substance: FLAVOXATE HYDROCHLORIDE
     Indication: Bladder disorder
     Dosage: UNK, 3X/DAY
     Route: 065
  4. ZOLPIDEM TARTRATE [Concomitant]
     Active Substance: ZOLPIDEM TARTRATE
     Indication: Sleep disorder
     Dosage: 5 MG, 1X/DAY (HALF A 10 MG TABLET) AT NIGHT
     Route: 065
  5. PHENELZINE [Concomitant]
     Active Substance: PHENELZINE
     Indication: Antidepressant therapy
     Dosage: 3 DF, 3 TABLETS TWICE A DAY 6 DAY FOR A LONG TIME
     Route: 065
  6. TOVIAZ [Concomitant]
     Active Substance: FESOTERODINE FUMARATE
     Indication: Bladder disorder
     Dosage: UNK, 1X/DAY
     Route: 065
  7. MIRABEGRON [Concomitant]
     Active Substance: MIRABEGRON
     Indication: Bladder disorder
     Dosage: UNK, 1X/DAY
     Route: 065

REACTIONS (10)
  - Electroencephalogram abnormal [Unknown]
  - Syncope [Unknown]
  - Angiopathy [Unknown]
  - Disorientation [Unknown]
  - Coronary artery disease [Unknown]
  - Epilepsy [Recovered/Resolved]
  - Amnesia [Unknown]
  - Confusional state [Unknown]
  - Depression [Not Recovered/Not Resolved]
  - Prescribed overdose [Unknown]

NARRATIVE: CASE EVENT DATE: 20220701
